FAERS Safety Report 23177984 (Version 4)
Quarter: 2024Q1

REPORT INFORMATION
  Report Type: Report from Study
  Country: US (occurrence: US)
  Receive Date: 20231113
  Receipt Date: 20240201
  Transmission Date: 20240410
  Serious: No
  Sender: FDA-Public Use
  Company Number: US-BIOVITRUM-2023-US-018012

PATIENT
  Age: 0 Year
  Sex: Female

DRUGS (6)
  1. SYNAGIS [Suspect]
     Active Substance: PALIVIZUMAB
     Indication: Respiratory syncytial virus infection
     Dosage: MONTHLY
     Route: 030
  2. SYNAGIS [Suspect]
     Active Substance: PALIVIZUMAB
     Indication: Cytogenetic abnormality
     Dosage: INJECT 15MG/KG INTRAMUSCULARLY EVERY 28 DAYS
     Route: 030
  3. SYNAGIS [Suspect]
     Active Substance: PALIVIZUMAB
     Indication: Hypoplastic left heart syndrome
  4. SYNAGIS [Suspect]
     Active Substance: PALIVIZUMAB
     Indication: Corrected transposition of great vessels
  5. DIGOXIN [Concomitant]
     Active Substance: DIGOXIN
     Indication: Product used for unknown indication
  6. FUROSEMIDE [Concomitant]
     Active Substance: FUROSEMIDE
     Indication: Product used for unknown indication

REACTIONS (1)
  - Rash [Unknown]
